FAERS Safety Report 7109660-8 (Version None)
Quarter: 2010Q4

REPORT INFORMATION
  Report Type: 
  Country: None (occurrence: None)
  Receive Date: 20101115
  Receipt Date: 20101115
  Transmission Date: 20110411
  Serious: Yes (Hospitalization)
  Sender: FDA-Public Use
  Company Number: None

PATIENT
  Sex: Female
  Weight: 83.9 kg

DRUGS (6)
  1. GEMZAR [Suspect]
     Indication: PANCREATIC CARCINOMA METASTATIC
     Dosage: 1463 MG GEMZAR WEEKLY 042-IV INFUSION
     Route: 042
     Dates: start: 20101006
  2. GEMZAR [Suspect]
     Indication: PANCREATIC CARCINOMA METASTATIC
     Dosage: 1463 MG GEMZAR WEEKLY 042-IV INFUSION
     Route: 042
     Dates: start: 20101012
  3. GEMZAR [Suspect]
     Indication: PANCREATIC CARCINOMA METASTATIC
     Dosage: 1463 MG GEMZAR WEEKLY 042-IV INFUSION
     Route: 042
     Dates: start: 20101102
  4. GEMZAR [Suspect]
  5. PAZOPANIB 200 MG TABLETS GLAXO SMITH KLINE [Suspect]
     Dosage: 600 MG PAZOPANIB DAILY 047-PO
     Route: 048
     Dates: start: 20101006, end: 20101015
  6. PAZOPANIB 200 MG TABLETS GLAXO SMITH KLINE [Suspect]
     Dosage: 600 MG PAZOPANIB DAILY 047-PO
     Route: 048
     Dates: start: 20101102, end: 20101109

REACTIONS (4)
  - DEHYDRATION [None]
  - DIARRHOEA [None]
  - NAUSEA [None]
  - PYREXIA [None]
